FAERS Safety Report 4511862-1 (Version None)
Quarter: 2004Q4

REPORT INFORMATION
  Report Type: 
  Country: None (occurrence: None)
  Receive Date: 20041129
  Receipt Date: 20041115
  Transmission Date: 20050328
  Serious: Yes (Hospitalization)
  Sender: FDA-Public Use
  Company Number: FR-JNJFOC-20041103784

PATIENT
  Age: 77 Year
  Sex: Female

DRUGS (8)
  1. REMINYL [Suspect]
     Route: 049
  2. REMINYL [Suspect]
     Indication: DRUG USE FOR UNKNOWN INDICATION
     Route: 049
  3. ESBERIVEN [Concomitant]
     Route: 065
  4. ESBERIVEN [Concomitant]
     Route: 065
  5. MOTILIUM [Concomitant]
     Route: 065
  6. GLUCOR [Concomitant]
     Route: 065
  7. AMAREL [Concomitant]
     Route: 065
  8. ZANIDIP [Concomitant]
     Route: 065

REACTIONS (7)
  - BLOOD PRESSURE INCREASED [None]
  - CONFUSIONAL STATE [None]
  - DUPUYTREN'S CONTRACTURE [None]
  - ECCHYMOSIS [None]
  - FALL [None]
  - RHABDOMYOLYSIS [None]
  - SCOLIOSIS [None]
